FAERS Safety Report 4848366-2 (Version None)
Quarter: 2005Q4

REPORT INFORMATION
  Report Type: 
  Country: None (occurrence: None)
  Receive Date: 20051208
  Receipt Date: 20051129
  Transmission Date: 20060501
  Serious: Yes (Other)
  Sender: FDA-Public Use
  Company Number: CA-ROCHE-426867

PATIENT
  Age: 39 Year
  Sex: Female

DRUGS (14)
  1. ROCEPHIN [Suspect]
     Indication: DRUG USE FOR UNKNOWN INDICATION
     Route: 042
  2. TRACLEER [Concomitant]
  3. MS CONTIN [Concomitant]
  4. ZAROXOLYN [Concomitant]
  5. WARFARIN SODIUM [Concomitant]
  6. ATIVAN [Concomitant]
  7. TEMAZEPAM [Concomitant]
  8. FLOLAN [Concomitant]
  9. GRAVOL TAB [Concomitant]
  10. LEVAQUIN [Concomitant]
  11. NICODERM [Concomitant]
  12. LASIX [Concomitant]
  13. SPIRONOLACTONE [Concomitant]
  14. K-DUR 10 [Concomitant]

REACTIONS (5)
  - ANXIETY [None]
  - DYSPNOEA [None]
  - HYPOXIA [None]
  - INJECTION SITE REACTION [None]
  - PRURITUS [None]
